FAERS Safety Report 9947931 (Version 1)
Quarter: 2014Q1

REPORT INFORMATION
  Report Type: Report from Study
  Country: US (occurrence: US)
  Receive Date: 20140303
  Receipt Date: 20140303
  Transmission Date: 20141002
  Serious: No
  Sender: FDA-Public Use
  Company Number: US-ABBVIE-13P-163-1064984-00

PATIENT
  Age: 61 Year
  Sex: Male

DRUGS (11)
  1. HUMIRA [Suspect]
     Indication: RHEUMATOID ARTHRITIS
     Dates: start: 201206
  2. HUMIRA [Suspect]
     Dates: start: 201301
  3. STEROID [Suspect]
     Indication: PRODUCT USED FOR UNKNOWN INDICATION
  4. STEROID [Suspect]
     Indication: PRODUCT USED FOR UNKNOWN INDICATION
  5. LISINOPRIL [Concomitant]
     Indication: HYPERTENSION
     Route: 048
  6. CRESTOR [Concomitant]
     Indication: BLOOD CHOLESTEROL INCREASED
     Dosage: 5 MG DAILY
     Route: 048
  7. ATENOLOL [Concomitant]
     Indication: CARDIAC DISORDER
     Dosage: 150 MG DAILY
     Route: 048
  8. ALLOPURINOL [Concomitant]
     Indication: GOUT
     Dosage: 300 MG DAILY
     Route: 048
  9. ASA [Concomitant]
     Indication: PRODUCT USED FOR UNKNOWN INDICATION
     Dosage: 81 MG DAILY
     Route: 048
  10. PRILOSEC [Concomitant]
     Indication: GASTROOESOPHAGEAL REFLUX DISEASE
     Dosage: 2 DAILY
     Route: 048
  11. CYMBALTA [Concomitant]
     Indication: ARTHRALGIA
     Dosage: 90 MG DAILY
     Route: 048

REACTIONS (3)
  - Insomnia [Recovered/Resolved]
  - Disorientation [Recovered/Resolved]
  - Prescribed overdose [Recovered/Resolved]
